FAERS Safety Report 4305280-9 (Version None)
Quarter: 2004Q1

REPORT INFORMATION
  Report Type: 
  Country: None (occurrence: None)
  Receive Date: 20040226
  Receipt Date: 20030131
  Transmission Date: 20041129
  Serious: No
  Sender: FDA-Public Use
  Company Number: US-BRISTOL-MYERS SQUIBB COMPANY-12175279

PATIENT
  Age: 47 Year
  Sex: Male

DRUGS (3)
  1. TAXOL [Suspect]
     Indication: LUNG CANCER METASTATIC
     Dosage: INITIAL DOSE ON 15-JAN-2003
     Route: 042
     Dates: start: 20030129, end: 20030129
  2. DECADRON [Concomitant]
     Indication: PREMEDICATION
     Route: 042
  3. BENADRYL [Concomitant]
     Indication: PREMEDICATION
     Route: 042

REACTIONS (3)
  - ABDOMINAL DISCOMFORT [None]
  - DYSPNOEA [None]
  - HEADACHE [None]
